FAERS Safety Report 9171095 (Version 1)
Quarter: 2013Q1

REPORT INFORMATION
  Report Type: Spontaneous
  Country: IT (occurrence: None)
  Receive Date: 20130315
  Receipt Date: 20130315
  Transmission Date: 20140127
  Serious: Yes (Death, Other)
  Sender: FDA-Public Use
  Company Number: 2013-04241

PATIENT
  Age: 53 Year
  Sex: Female

DRUGS (1)
  1. LORAZEPAM (WATSON LABORATORIES) (LORAZEPAM) UNK, UNKUNK [Suspect]
     Indication: HOMICIDE
     Dosage: UNK UNK, SINGLE, UNKNOWN

REACTIONS (12)
  - Sedation [None]
  - Intentional drug misuse [None]
  - Homicide [None]
  - Gas poisoning [None]
  - Completed suicide [None]
  - Brain oedema [None]
  - Pulmonary oedema [None]
  - Injury [None]
  - Pulmonary congestion [None]
  - Pulmonary congestion [None]
  - Emphysema [None]
  - Ischaemia [None]
